FAERS Safety Report 24841208 (Version 1)
Quarter: 2025Q1

REPORT INFORMATION
  Report Type: Spontaneous
  Country: IT (occurrence: IT)
  Receive Date: 20250114
  Receipt Date: 20250114
  Transmission Date: 20250409
  Serious: Yes (Other)
  Sender: ALEXION PHARMACEUTICALS
  Company Number: IT-ASTRAZENECA-202401GLO002412IT

PATIENT

DRUGS (4)
  1. GEFITINIB [Suspect]
     Active Substance: GEFITINIB
     Indication: Non-small cell lung cancer
     Route: 065
  2. GEFITINIB [Suspect]
     Active Substance: GEFITINIB
     Route: 065
  3. GEFITINIB [Suspect]
     Active Substance: GEFITINIB
     Route: 065
  4. GEFITINIB [Suspect]
     Active Substance: GEFITINIB
     Route: 065

REACTIONS (4)
  - Malignant neoplasm progression [Unknown]
  - Drug resistance [Unknown]
  - BRAF gene mutation [Unknown]
  - K-ras gene mutation [Unknown]
